FAERS Safety Report 10373194 (Version 1)
Quarter: 2014Q3

REPORT INFORMATION
  Report Type: Spontaneous
  Country: US (occurrence: US)
  Receive Date: 20140808
  Receipt Date: 20140808
  Transmission Date: 20150326
  Serious: Yes (Other)
  Sender: FDA-Public Use
  Company Number: US-BRISTOL-MYERS SQUIBB COMPANY-20168639

PATIENT
  Age: 40 Year
  Sex: Male

DRUGS (5)
  1. SPRYCEL [Suspect]
     Active Substance: DASATINIB
     Indication: CHRONIC MYELOID LEUKAEMIA
     Dosage: TABS,REDUCED TO 80MG
     Dates: start: 200911
  2. MULTIVITAMIN [Concomitant]
     Active Substance: VITAMINS
  3. ACETAMINOPHEN. [Concomitant]
     Active Substance: ACETAMINOPHEN
     Dosage: 1DF: 5/325MG
  4. TESTOSTERONE. [Concomitant]
     Active Substance: TESTOSTERONE
     Route: 061
  5. HYDROCODONE [Concomitant]
     Active Substance: HYDROCODONE

REACTIONS (1)
  - Thrombocytopenia [Recovering/Resolving]
